FAERS Safety Report 6448689-X (Version None)
Quarter: 2009Q4

REPORT INFORMATION
  Report Type: 
  Country: None (occurrence: None)
  Receive Date: 20091120
  Receipt Date: 20091019
  Transmission Date: 20100525
  Serious: Yes (Other)
  Sender: FDA-Public Use
  Company Number: ES-SANOFI-AVENTIS-200916468EU

PATIENT
  Age: 77 Year
  Sex: Male

DRUGS (3)
  1. SEGURIL [Suspect]
     Indication: HYPERTENSION
     Route: 048
     Dates: start: 20010101
  2. ALDACTONE [Suspect]
     Indication: HYPERTENSION
     Route: 048
     Dates: start: 20051019, end: 20051121
  3. RENITEC /NET/ [Suspect]
     Indication: HYPERTENSION
     Route: 048
     Dates: start: 20010101, end: 20051103

REACTIONS (2)
  - HYPERKALAEMIA [None]
  - RENAL FAILURE ACUTE [None]
